FAERS Safety Report 5405514-3 (Version None)
Quarter: 2007Q3

REPORT INFORMATION
  Report Type: 
  Country: None (occurrence: None)
  Receive Date: 20070803
  Receipt Date: 20070724
  Transmission Date: 20080115
  Serious: Yes (Other)
  Sender: FDA-Public Use
  Company Number: FR-PFIZER INC-2007061437

PATIENT
  Sex: Male

DRUGS (2)
  1. LYRICA [Suspect]
  2. NORSET [Interacting]

REACTIONS (3)
  - DRUG INTERACTION [None]
  - MUSCLE CONTRACTURE [None]
  - TENDONITIS [None]
